FAERS Safety Report 18948931 (Version 1)
Quarter: 2021Q1

REPORT INFORMATION
  Report Type: Spontaneous
  Country: US (occurrence: US)
  Receive Date: 20210227
  Receipt Date: 20210227
  Transmission Date: 20210420
  Serious: No
  Sender: FDA-Public Use
  Company Number: US-TEVA-2021-US-1884885

PATIENT
  Sex: Male

DRUGS (1)
  1. ZOLPIDEM TARTRATE TEVA [Suspect]
     Active Substance: ZOLPIDEM TARTRATE
     Indication: INSOMNIA
     Route: 065
     Dates: start: 202102

REACTIONS (1)
  - Drug ineffective [Unknown]
